FAERS Safety Report 7866412-9 (Version None)
Quarter: 2011Q4

REPORT INFORMATION
  Report Type: 
  Country: None (occurrence: None)
  Receive Date: 20111028
  Receipt Date: 20110613
  Transmission Date: 20120403
  Serious: No
  Sender: FDA-Public Use
  Company Number: US-GLAXOSMITHKLINE-A0931323A

PATIENT
  Age: 80 Year
  Sex: Female

DRUGS (14)
  1. SINGULAIR [Concomitant]
  2. ZOCOR [Concomitant]
  3. ZETIA [Concomitant]
  4. ASPIRIN [Concomitant]
  5. BENADRYL [Concomitant]
  6. CALCIUM CARBONATE [Concomitant]
  7. MULTI-VITAMIN [Concomitant]
  8. VITAMIN D [Concomitant]
  9. PROTONIX [Concomitant]
  10. CRANBERRY [Concomitant]
  11. GLUCOSAMINE [Concomitant]
  12. ADVAIR DISKUS 100/50 [Suspect]
     Indication: ASTHMA
     Dosage: 1PUFF TWICE PER DAY
     Route: 055
     Dates: start: 20070101
  13. BLOOD PRESSURE MEDICATION [Concomitant]
  14. ASCORBIC ACID [Concomitant]

REACTIONS (1)
  - CANDIDIASIS [None]
